FAERS Safety Report 9847361 (Version 1)
Quarter: 2014Q1

REPORT INFORMATION
  Report Type: Report from Study
  Country: US (occurrence: US)
  Receive Date: 20140127
  Receipt Date: 20140127
  Transmission Date: 20141002
  Serious: Yes (Other)
  Sender: FDA-Public Use
  Company Number: US-ABBVIE-14P-163-1193102-00

PATIENT
  Age: 60 Year
  Sex: Female

DRUGS (7)
  1. ADVICOR [Suspect]
     Indication: BLOOD CHOLESTEROL INCREASED
  2. REBIF [Suspect]
     Indication: PRODUCT USED FOR UNKNOWN INDICATION
     Route: 058
     Dates: start: 20090626
  3. VITAMIN D [Interacting]
     Indication: PRODUCT USED FOR UNKNOWN INDICATION
  4. VALSARTAN [Concomitant]
     Indication: HYPERTENSION
  5. HYDROCHLOORTHIAZIDE [Concomitant]
     Indication: HYPERTENSION
  6. PROZAC [Concomitant]
     Indication: PRODUCT USED FOR UNKNOWN INDICATION
  7. GABAPENTIN [Concomitant]
     Indication: PRODUCT USED FOR UNKNOWN INDICATION

REACTIONS (5)
  - Hepatic steatosis [Unknown]
  - Tearfulness [Unknown]
  - Memory impairment [Unknown]
  - Injection site erythema [Unknown]
  - Drug interaction [Unknown]
